FAERS Safety Report 9266094 (Version 3)
Quarter: 2013Q3

REPORT INFORMATION
  Report Type: Report from Study
  Country: GR (occurrence: GR)
  Receive Date: 20130501
  Receipt Date: 20130722
  Transmission Date: 20140515
  Serious: Yes (Hospitalization)
  Sender: FDA-Public Use
  Company Number: GR-ABBOTT-13P-066-1081809-00

PATIENT
  Age: 29 Year
  Sex: Female
  Weight: 37.5 kg

DRUGS (3)
  1. ZEMPLAR [Suspect]
     Indication: HYPERPARATHYROIDISM SECONDARY
     Route: 042
     Dates: start: 20121119, end: 20130226
  2. CARVEDILOL [Concomitant]
     Indication: CARDIAC FAILURE
     Route: 048
     Dates: start: 20090710
  3. GABAPENTIN [Concomitant]
     Indication: NEUROPATHY PERIPHERAL
     Route: 048
     Dates: start: 20121012

REACTIONS (7)
  - Neoplasm [Unknown]
  - Articular calcification [Unknown]
  - Hyperparathyroidism secondary [Not Recovered/Not Resolved]
  - Drug ineffective [Not Recovered/Not Resolved]
  - Calcium phosphate product increased [Unknown]
  - Pyrexia [Unknown]
  - Pain in extremity [Unknown]
